FAERS Safety Report 11997474 (Version 1)
Quarter: 2016Q1

REPORT INFORMATION
  Report Type: Report from Study
  Country: US (occurrence: US)
  Receive Date: 20160203
  Receipt Date: 20160203
  Transmission Date: 20160526
  Serious: Yes (Other)
  Sender: FDA-Public Use
  Company Number: US-AMGEN-USASL2016010648

PATIENT
  Age: 84 Year
  Sex: Female

DRUGS (5)
  1. METHOTREXATE [Concomitant]
     Active Substance: METHOTREXATE
     Dosage: 2.5 MG, UNK
  2. CLOBETASOL [Concomitant]
     Active Substance: CLOBETASOL
  3. BETAMETHASONE. [Concomitant]
     Active Substance: BETAMETHASONE
  4. HUMIRA [Concomitant]
     Active Substance: ADALIMUMAB
  5. ENBREL [Suspect]
     Active Substance: ETANERCEPT
     Indication: PSORIASIS
     Dosage: 50 MG, 2 TIMES/WK
     Route: 065
     Dates: start: 20060917

REACTIONS (5)
  - Breast cancer [Unknown]
  - Psoriasis [Unknown]
  - Skin cancer [Unknown]
  - Diabetes mellitus [Unknown]
  - Osteoarthritis [Unknown]
